FAERS Safety Report 16564445 (Version 1)
Quarter: 2019Q3

REPORT INFORMATION
  Report Type: Spontaneous
  Country: US (occurrence: US)
  Receive Date: 20190712
  Receipt Date: 20190712
  Transmission Date: 20191004
  Serious: Yes (Other)
  Sender: FDA-Public Use
  Company Number: US-DRREDDYS-USA/USA/19/0111757

PATIENT
  Age: 45 Year
  Sex: Male

DRUGS (1)
  1. ISOTRETINOIN. [Suspect]
     Active Substance: ISOTRETINOIN
     Indication: ALOPECIA SCARRING
     Dosage: CUMULATIVE DOSE 3600 MG OR 31.7MG/KG

REACTIONS (5)
  - Cheilitis [Unknown]
  - Staphylococcal infection [Unknown]
  - Alopecia scarring [Unknown]
  - Squamous cell carcinoma [Unknown]
  - Nodule [Unknown]
